FAERS Safety Report 8192691-7 (Version None)
Quarter: 2012Q1

REPORT INFORMATION
  Report Type: 
  Country: None (occurrence: None)
  Receive Date: 20120221
  Receipt Date: 20111109
  Transmission Date: 20120608
  Serious: No
  Sender: FDA-Public Use
  Company Number: 1000025357

PATIENT
  Age: 23 Year
  Sex: Female

DRUGS (4)
  1. VIIBRYD [Suspect]
     Indication: MAJOR DEPRESSION
     Dosage: 30 MG (30 MG, 1 IN 1 D),ORAL; 20 MG (20 MG, 1 IN  1 D),ORAL
     Route: 048
     Dates: start: 20111110
  2. VIIBRYD [Suspect]
     Indication: MAJOR DEPRESSION
     Dosage: 30 MG (30 MG, 1 IN 1 D),ORAL; 20 MG (20 MG, 1 IN  1 D),ORAL
     Route: 048
     Dates: start: 20111010, end: 20111109
  3. XANAX [Concomitant]
  4. VIIBRYD [Suspect]
     Indication: MAJOR DEPRESSION
     Dosage: 20 MG (20 MG, 1 IN 1 D),ORAL
     Route: 048
     Dates: start: 20111003, end: 20111009

REACTIONS (4)
  - ABNORMAL DREAMS [None]
  - NIGHTMARE [None]
  - ERUCTATION [None]
  - TREMOR [None]
